FAERS Safety Report 22247583 (Version 1)
Quarter: 2023Q2

REPORT INFORMATION
  Report Type: Report from Study
  Country: US (occurrence: US)
  Receive Date: 20230425
  Receipt Date: 20230425
  Transmission Date: 20230722
  Serious: Yes (Death, Hospitalization)
  Sender: FDA-Public Use
  Company Number: US-ABBVIE-4740350

PATIENT
  Sex: Female

DRUGS (1)
  1. CREON [Suspect]
     Active Substance: PANCRELIPASE AMYLASE\PANCRELIPASE LIPASE\PANCRELIPASE PROTEASE
     Indication: Product used for unknown indication
     Dosage: FORM STRENGTH: 36000 UNIT?FREQUENCY TEXT: 2 CAPS PER MEAL; 1 CAP PER SNACK PER DAY
     Route: 048
     Dates: start: 20220628, end: 202304

REACTIONS (2)
  - Malaise [Fatal]
  - Neoplasm malignant [Fatal]
